FAERS Safety Report 7267144-0 (Version None)
Quarter: 2011Q1

REPORT INFORMATION
  Report Type: 
  Country: None (occurrence: None)
  Receive Date: 20110201
  Receipt Date: 20110118
  Transmission Date: 20110831
  Serious: Yes (Disabling)
  Sender: FDA-Public Use
  Company Number: ZA-RANBAXY-2011R5-41214

PATIENT

DRUGS (1)
  1. SERTRALINE [Suspect]
     Indication: DEPRESSION
     Dosage: 100 MG, QD
     Route: 065

REACTIONS (6)
  - DECREASED APPETITE [None]
  - AGGRESSION [None]
  - BEDRIDDEN [None]
  - ANGER [None]
  - MOOD SWINGS [None]
  - CRYING [None]
